FAERS Safety Report 11323494 (Version 2)
Quarter: 2016Q1

REPORT INFORMATION
  Report Type: Spontaneous
  Country: US (occurrence: US)
  Receive Date: 20150730
  Receipt Date: 20160211
  Transmission Date: 20160525
  Serious: Yes (Death, Other)
  Sender: FDA-Public Use
  Company Number: US-ASTRAZENECA-2015SE71920

PATIENT
  Age: 65 Year
  Sex: Male
  Weight: 93.4 kg

DRUGS (23)
  1. MS CONTIN [Concomitant]
     Active Substance: MORPHINE SULFATE
     Dates: start: 20130906
  2. HYDROCODONE/ACETAMINOPHENE [Concomitant]
     Dosage: 7.5 MG-325 MG
     Dates: start: 20130906
  3. ZOCOR [Concomitant]
     Active Substance: SIMVASTATIN
     Dates: start: 20080425
  4. PRAVASTATIN [Concomitant]
     Active Substance: PRAVASTATIN\PRAVASTATIN SODIUM
     Dates: start: 20080910
  5. BENAZEPRIL/HTCZ [Concomitant]
     Dosage: 20-12.5 MG
     Dates: start: 20100616
  6. LOSARTAN POTASSIUM. [Concomitant]
     Active Substance: LOSARTAN POTASSIUM
     Dates: start: 20130802
  7. PROVENTIL/VENTOLIN [Concomitant]
     Dates: start: 20080425
  8. SEREVENT DISKUS [Concomitant]
     Active Substance: SALMETEROL XINAFOATE
     Dates: start: 20080425
  9. BENICAR [Concomitant]
     Active Substance: OLMESARTAN MEDOXOMIL
     Dates: start: 20080910
  10. BYETTA [Suspect]
     Active Substance: EXENATIDE
     Route: 065
     Dates: start: 20081121
  11. BYETTA [Suspect]
     Active Substance: EXENATIDE
     Route: 065
     Dates: start: 20081203
  12. MARINOL [Concomitant]
     Active Substance: DRONABINOL
     Dates: start: 20130906
  13. ASPIRIN. [Concomitant]
     Active Substance: ASPIRIN
     Dates: start: 20130802
  14. GLIPIZIDE. [Concomitant]
     Active Substance: GLIPIZIDE
     Route: 048
     Dates: start: 20080910
  15. LISINOPRIL. [Concomitant]
     Active Substance: LISINOPRIL
     Dates: start: 20080919
  16. OXYBUTYNIN [Concomitant]
     Active Substance: OXYBUTYNIN
     Dates: start: 20090716
  17. PRILOSEC [Concomitant]
     Active Substance: OMEPRAZOLE MAGNESIUM
     Dates: start: 20130814
  18. BYETTA [Suspect]
     Active Substance: EXENATIDE
     Route: 065
     Dates: start: 2008, end: 2009
  19. METFORMIN [Concomitant]
     Active Substance: METFORMIN HYDROCHLORIDE
     Dates: start: 20080910
  20. BENAZEPRIL [Concomitant]
     Active Substance: BENAZEPRIL HYDROCHLORIDE
     Dates: start: 20091103
  21. AUGMENTIN [Concomitant]
     Active Substance: AMOXICILLIN\CLAVULANATE POTASSIUM
     Dosage: 875-125 MG, TWO TIMES A DAY
     Route: 048
     Dates: start: 20080425
  22. PREDNISONE. [Concomitant]
     Active Substance: PREDNISONE
     Dates: start: 20080425
  23. ACTOS [Concomitant]
     Active Substance: PIOGLITAZONE HYDROCHLORIDE
     Dates: start: 20080425

REACTIONS (5)
  - Metastases to lung [Unknown]
  - Pancreatic carcinoma metastatic [Fatal]
  - Metastases to liver [Unknown]
  - Prostate cancer [Unknown]
  - Appendix disorder [Unknown]

NARRATIVE: CASE EVENT DATE: 2009
